FAERS Safety Report 26196811 (Version 1)
Quarter: 2025Q4

REPORT INFORMATION
  Report Type: Report from Study
  Country: EU (occurrence: None)
  Receive Date: 20251224
  Receipt Date: 20251224
  Transmission Date: 20260117
  Serious: Yes (Congenital Anomaly, Other)
  Sender: UCB
  Company Number: EU-UCBSA-2025081775

PATIENT

DRUGS (2)
  1. LEVETIRACETAM [Suspect]
     Active Substance: LEVETIRACETAM
     Indication: Seizure
     Dosage: 1250 MILLIGRAM, ONCE DAILY (QD)
  2. LEVETIRACETAM [Suspect]
     Active Substance: LEVETIRACETAM
     Dosage: UNK, DOSE CHANGE IN FIRST TRIMESTER

REACTIONS (2)
  - Patent ductus arteriosus [Unknown]
  - Maternal exposure during pregnancy [Unknown]
